FAERS Safety Report 25699974 (Version 1)
Quarter: 2025Q3

REPORT INFORMATION
  Report Type: Spontaneous
  Country: US (occurrence: None)
  Receive Date: 20250818
  Receipt Date: 20250818
  Transmission Date: 20251021
  Serious: No
  Sender: FDA-CTU
  Company Number: None

PATIENT
  Age: 40 Year
  Sex: Male
  Weight: 90 kg

DRUGS (3)
  1. FINASTERIDE\HYDROCORTISONE\MINOXIDIL\TRETINOIN [Suspect]
     Active Substance: FINASTERIDE\HYDROCORTISONE\MINOXIDIL\TRETINOIN
     Indication: Alopecia
     Dosage: 1 ML TWICE A DAY TOPICAL?
     Route: 061
  2. VITAMINS [Concomitant]
     Active Substance: VITAMINS
  3. OTC antiflammatory [Concomitant]

REACTIONS (5)
  - Product deposit [None]
  - Product physical issue [None]
  - Skin irritation [None]
  - Skin burning sensation [None]
  - Product quality issue [None]

NARRATIVE: CASE EVENT DATE: 20250815
